FAERS Safety Report 9863320 (Version 1)
Quarter: 2014Q1

REPORT INFORMATION
  Report Type: Spontaneous
  Country: MX (occurrence: MX)
  Receive Date: 20140203
  Receipt Date: 20140203
  Transmission Date: 20141002
  Serious: Yes (Death, Other)
  Sender: FDA-Public Use
  Company Number: MX-ACTAVIS-2014-01039

PATIENT
  Sex: Female
  Weight: 1.53 kg

DRUGS (1)
  1. CARBAMAZEPINE (UNKNOWN) [Suspect]
     Indication: EPILEPSY
     Dosage: 400 MG, DAILY
     Route: 064

REACTIONS (7)
  - Neonatal respiratory alkalosis [Fatal]
  - Neonatal respiratory distress syndrome [Fatal]
  - Pulmonary hypertension [Fatal]
  - Neutropenia [Fatal]
  - Foetal anticonvulsant syndrome [Fatal]
  - Spina bifida [Fatal]
  - Foetal exposure during pregnancy [Fatal]
